FAERS Safety Report 10951771 (Version 1)
Quarter: 2015Q1

REPORT INFORMATION
  Report Type: Spontaneous
  Country: FR (occurrence: FR)
  Receive Date: 20150325
  Receipt Date: 20150325
  Transmission Date: 20150721
  Serious: Yes (Disabling)
  Sender: FDA-Public Use
  Company Number: FR-ROCHE-1510092

PATIENT
  Age: 48 Year
  Sex: Male
  Weight: 64 kg

DRUGS (6)
  1. GAVISCON (ALGINIC ACID) [Concomitant]
     Route: 048
  2. IMOVANE [Concomitant]
     Active Substance: ZOPICLONE
     Route: 048
  3. MOTILIUM [Concomitant]
     Active Substance: DOMPERIDONE
     Indication: GASTROOESOPHAGEAL REFLUX DISEASE
     Route: 048
  4. AVASTIN [Suspect]
     Active Substance: BEVACIZUMAB
     Route: 042
     Dates: start: 20141104, end: 20141230
  5. AVASTIN [Suspect]
     Active Substance: BEVACIZUMAB
     Indication: COLORECTAL CANCER METASTATIC
     Route: 065
  6. XELODA [Concomitant]
     Active Substance: CAPECITABINE
     Indication: COLORECTAL CANCER METASTATIC
     Route: 048
     Dates: start: 20141104, end: 20141230

REACTIONS (1)
  - Vasodilatation [Recovering/Resolving]
